FAERS Safety Report 4565276-9 (Version None)
Quarter: 2005Q1

REPORT INFORMATION
  Report Type: 
  Country: None (occurrence: None)
  Receive Date: 20050131
  Receipt Date: 20050124
  Transmission Date: 20050727
  Serious: Yes (Other)
  Sender: FDA-Public Use
  Company Number: PHEH2005US01211

PATIENT
  Age: 66 Year
  Sex: Female

DRUGS (4)
  1. ZELNORM [Suspect]
     Indication: IRRITABLE BOWEL SYNDROME
     Dosage: 6 MG, BID
     Dates: start: 20050117
  2. NEXIUM [Concomitant]
  3. ALEVE [Concomitant]
  4. ALBUTEROL [Concomitant]

REACTIONS (4)
  - BLOOD PRESSURE INCREASED [None]
  - CONDITION AGGRAVATED [None]
  - CONSTIPATION [None]
  - HEART RATE INCREASED [None]
